FAERS Safety Report 20247140 (Version 8)
Quarter: 2022Q3

REPORT INFORMATION
  Report Type: Report from Study
  Country: CA (occurrence: CA)
  Receive Date: 20211229
  Receipt Date: 20220912
  Transmission Date: 20221026
  Serious: Yes (Other)
  Sender: FDA-Public Use
  Company Number: CA-OTSUKA-2021_045107

PATIENT
  Age: 81 Year
  Sex: Female

DRUGS (1)
  1. CEDAZURIDINE\DECITABINE [Suspect]
     Active Substance: CEDAZURIDINE\DECITABINE
     Indication: Myelodysplastic syndrome
     Dosage: 1 DF (35 MG DECITABINE AND 100 MG CEDAZURIDINE), QD (DAY 1-5) OF 28 DAYS CYCLE
     Route: 048
     Dates: start: 20211220, end: 20220907

REACTIONS (13)
  - Transfusion [Unknown]
  - Full blood count abnormal [Unknown]
  - Loss of consciousness [Unknown]
  - Blood product transfusion dependent [Unknown]
  - Leukaemia [Unknown]
  - Biopsy bone marrow [Unknown]
  - Eastern Cooperative Oncology Group performance status worsened [Unknown]
  - Full blood count abnormal [Unknown]
  - Disease progression [Unknown]
  - General physical health deterioration [Unknown]
  - Diarrhoea [Unknown]
  - Dizziness [Unknown]
  - Therapy interrupted [Unknown]

NARRATIVE: CASE EVENT DATE: 20211221
